FAERS Safety Report 12613610 (Version 2)
Quarter: 2016Q3

REPORT INFORMATION
  Report Type: Spontaneous
  Country: IT (occurrence: IT)
  Receive Date: 20160802
  Receipt Date: 20160915
  Transmission Date: 20161109
  Serious: Yes (Other)
  Sender: FDA-Public Use
  Company Number: IT-THROMBOGENICS NV-SPO-2016-2243

PATIENT
  Age: 64 Year
  Sex: Female

DRUGS (2)
  1. JETREA [Suspect]
     Active Substance: OCRIPLASMIN
     Indication: VITREOUS ADHESIONS
     Dosage: 0.125 MG, ONE TIME DOSE
     Route: 031
     Dates: start: 20140903, end: 20140903
  2. JETREA [Suspect]
     Active Substance: OCRIPLASMIN
     Indication: MACULAR HOLE

REACTIONS (3)
  - Macular hole [Recovered/Resolved with Sequelae]
  - Disease progression [Recovered/Resolved with Sequelae]
  - Retinal injury [Recovered/Resolved with Sequelae]

NARRATIVE: CASE EVENT DATE: 20140918
